FAERS Safety Report 25963260 (Version 2)
Quarter: 2025Q4

REPORT INFORMATION
  Report Type: Spontaneous
  Country: CA (occurrence: CA)
  Receive Date: 20251027
  Receipt Date: 20251218
  Transmission Date: 20260117
  Serious: Yes (Other)
  Sender: PFIZER
  Company Number: CA-PFIZER INC-202500162059

PATIENT
  Age: 66 Year
  Sex: Female

DRUGS (4)
  1. RUXIENCE [Suspect]
     Active Substance: RITUXIMAB-PVVR
     Indication: Rheumatoid arthritis
     Dosage: DAY 1 AND DAY 15
     Route: 042
     Dates: start: 20250423
  2. RUXIENCE [Suspect]
     Active Substance: RITUXIMAB-PVVR
     Dosage: DAY 1 AND DAY 15
     Route: 042
     Dates: start: 20250506
  3. METHOTREXATE [Concomitant]
     Active Substance: METHOTREXATE
     Dosage: 1 DF (0.6 ML)
     Dates: start: 2011
  4. PREDNISONE [Concomitant]
     Active Substance: PREDNISONE
     Dosage: 20 MG
     Dates: start: 20250215

REACTIONS (1)
  - Elbow operation [Unknown]

NARRATIVE: CASE EVENT DATE: 20251009
